FAERS Safety Report 11161828 (Version 1)
Quarter: 2015Q2

REPORT INFORMATION
  Report Type: Spontaneous
  Country: US (occurrence: US)
  Receive Date: 20150604
  Receipt Date: 20150604
  Transmission Date: 20150821
  Serious: No
  Sender: FDA-Public Use
  Company Number: US-SA-2014SA109743

PATIENT
  Age: 23 Year
  Sex: Female

DRUGS (3)
  1. LANTUS [Suspect]
     Active Substance: INSULIN GLARGINE
     Indication: TYPE 1 DIABETES MELLITUS
     Dosage: DOSE:10 UNIT(S)
     Route: 065
     Dates: start: 201408
  2. NOVOLOG [Concomitant]
     Active Substance: INSULIN ASPART
  3. HUMULIN R [Concomitant]
     Active Substance: INSULIN HUMAN

REACTIONS (8)
  - Hypophagia [Unknown]
  - Vision blurred [Unknown]
  - Nausea [Unknown]
  - Feeling jittery [Unknown]
  - Dizziness [Unknown]
  - Anxiety [Unknown]
  - Abdominal pain upper [Unknown]
  - Frustration [Unknown]
